FAERS Safety Report 9316355 (Version 1)
Quarter: 2013Q2

REPORT INFORMATION
  Report Type: Spontaneous
  Country: CH (occurrence: None)
  Receive Date: 20130522
  Receipt Date: 20130522
  Transmission Date: 20140414
  Serious: Yes (Hospitalization)
  Sender: FDA-Public Use
  Company Number: PHHY2013CH046847

PATIENT
  Age: 14 Year
  Sex: Male

DRUGS (1)
  1. BACLOFEN INTRATHECAL (BACLOFEN) AMPOULE [Suspect]
     Route: 037

REACTIONS (8)
  - Hiatus hernia [None]
  - Vomiting [None]
  - Regurgitation [None]
  - Malaise [None]
  - Flatulence [None]
  - Drooling [None]
  - Pallor [None]
  - Therapeutic response decreased [None]
